FAERS Safety Report 10257241 (Version 2)
Quarter: 2014Q2

REPORT INFORMATION
  Report Type: Spontaneous
  Country: IT (occurrence: None)
  Receive Date: 20140620
  Receipt Date: 20140624
  Transmission Date: 20141212
  Serious: Yes (Life-Threatening)
  Sender: FDA-Public Use
  Company Number: AUR-APL-2014-06465

PATIENT
  Age: 74 Year
  Sex: Female

DRUGS (6)
  1. METFORMIN [Suspect]
     Indication: DIABETES MELLITUS
     Route: 048
     Dates: start: 20130605, end: 20140605
  2. LASIX [Concomitant]
  3. EN [Concomitant]
  4. GLUCOFERRO [Concomitant]
  5. CONTRAMAL [Concomitant]
  6. ARTROSILENE [Concomitant]

REACTIONS (5)
  - Renal failure acute [None]
  - Hypoglycaemia [None]
  - Lactic acidosis [None]
  - Blood potassium increased [None]
  - Dialysis [None]
